FAERS Safety Report 8126348 (Version 5)
Quarter: 2013Q3

REPORT INFORMATION
  Report Type: Report from Study
  Country: AT (occurrence: AT)
  Receive Date: 20110908
  Receipt Date: 20130705
  Transmission Date: 20140515
  Serious: Yes (Hospitalization)
  Sender: FDA-Public Use
  Company Number: AT-ROCHE-799584

PATIENT
  Age: 47 Year
  Sex: Male
  Weight: 110 kg

DRUGS (2)
  1. PEG-INTERFERON ALFA 2A [Suspect]
     Indication: CHRONIC HEPATITIS C
     Dosage: LAST DOSE PRIOR TO SAE: 26 AUG 2011, PERMANENTLY DISCONTINUED
     Route: 058
     Dates: start: 20100910, end: 20110829
  2. RIBAVIRIN [Suspect]
     Indication: CHRONIC HEPATITIS C
     Dosage: LAST DOSE PRIOR TO SAE: 26 AUG 2011, FREQ: 3-0-3, PERMANENTLY DISCONTINUED
     Route: 048
     Dates: start: 20100910, end: 20110829

REACTIONS (2)
  - Renal failure [Recovered/Resolved]
  - Epilepsy [Recovered/Resolved]
